FAERS Safety Report 20849707 (Version 9)
Quarter: 2025Q1

REPORT INFORMATION
  Report Type: Spontaneous
  Country: US (occurrence: US)
  Receive Date: 20220519
  Receipt Date: 20250107
  Transmission Date: 20250409
  Serious: No
  Sender: PFIZER
  Company Number: US-PFIZER INC-202200604856

PATIENT
  Age: 74 Year
  Sex: Female
  Weight: 117.93 kg

DRUGS (2)
  1. SOMAVERT [Suspect]
     Active Substance: PEGVISOMANT
     Indication: Acromegaly
     Dosage: 25 MG, DAILY (IN THE EVENING)
     Route: 058
     Dates: start: 2016
  2. SOMAVERT [Suspect]
     Active Substance: PEGVISOMANT
     Dosage: 30 MG, DAILY

REACTIONS (7)
  - Product dose omission issue [Unknown]
  - Pain [Recovered/Resolved]
  - Abdominal pain upper [Recovered/Resolved]
  - Abdominal discomfort [Recovered/Resolved]
  - Off label use [Unknown]
  - Product complaint [Unknown]
  - Poor quality product administered [Unknown]

NARRATIVE: CASE EVENT DATE: 20160101
